FAERS Safety Report 6029407-6 (Version None)
Quarter: 2009Q1

REPORT INFORMATION
  Report Type: 
  Country: None (occurrence: None)
  Receive Date: 20090105
  Receipt Date: 20081225
  Transmission Date: 20090719
  Serious: Yes (Hospitalization)
  Sender: FDA-Public Use
  Company Number: 1000003320

PATIENT
  Age: 83 Year
  Sex: Female
  Weight: 45 kg

DRUGS (3)
  1. MEMANTINE HCL [Suspect]
     Indication: DEMENTIA ALZHEIMER'S TYPE
     Dosage: 20 MG (20 MG, 1 IN 1 D), ORAL
     Route: 048
     Dates: start: 20080905, end: 20081215
  2. MECOBALAMIN [Concomitant]
  3. BETAHISTINE MESILATE [Concomitant]

REACTIONS (7)
  - BILE DUCT OBSTRUCTION [None]
  - BLOOD GLUCOSE INCREASED [None]
  - CHOLECYSTITIS [None]
  - HEPATIC FUNCTION ABNORMAL [None]
  - PROTEIN TOTAL DECREASED [None]
  - RENAL DISORDER [None]
  - SPLENOMEGALY [None]
